FAERS Safety Report 17565577 (Version 1)
Quarter: 2020Q1

REPORT INFORMATION
  Report Type: Spontaneous
  Country: US (occurrence: US)
  Receive Date: 20200320
  Receipt Date: 20200320
  Transmission Date: 20200409
  Serious: Yes (Other)
  Sender: FDA-Public Use
  Company Number: None

PATIENT
  Age: 48 Year
  Sex: Female
  Weight: 121.5 kg

DRUGS (2)
  1. PREGABALIN. [Suspect]
     Active Substance: PREGABALIN
     Indication: FIBROMYALGIA
     Route: 048
     Dates: start: 20200309, end: 20200319
  2. PREGABALIN. [Concomitant]
     Active Substance: PREGABALIN
     Dates: start: 20200309, end: 20200319

REACTIONS (2)
  - Urticaria [None]
  - Blister [None]

NARRATIVE: CASE EVENT DATE: 20200310
